FAERS Safety Report 5586261-4 (Version None)
Quarter: 2007Q4

REPORT INFORMATION
  Report Type: 
  Country: None (occurrence: None)
  Receive Date: 20071212
  Receipt Date: 20070427
  Transmission Date: 20080405
  Serious: Yes (Death)
  Sender: FDA-Public Use
  Company Number: USA-2007-0027199

PATIENT
  Age: 22 Year
  Sex: Male

DRUGS (2)
  1. OXYCONTIN [Suspect]
     Indication: DRUG ABUSER
     Dosage: 80 MG, SINGLE
  2. ALCOHOL (ETHANOL) [Suspect]
     Indication: ALCOHOL USE

REACTIONS (1)
  - MULTIPLE DRUG OVERDOSE [None]
